FAERS Safety Report 15622739 (Version 1)
Quarter: 2018Q4

REPORT INFORMATION
  Report Type: Report from Study
  Country: TW (occurrence: TW)
  Receive Date: 20181115
  Receipt Date: 20181115
  Transmission Date: 20190205
  Serious: Yes (Hospitalization, Other)
  Sender: FDA-Public Use
  Company Number: TW-ACTELION-A-US2018-180885

PATIENT
  Age: 68 Year
  Sex: Female

DRUGS (1)
  1. VENTAVIS [Suspect]
     Active Substance: ILOPROST
     Indication: PULMONARY ARTERIAL HYPERTENSION
     Dosage: UNK, Q4HRS
     Route: 055
     Dates: start: 20161028

REACTIONS (3)
  - Dyspnoea [Not Recovered/Not Resolved]
  - Mental impairment [Unknown]
  - Pleural effusion [Unknown]

NARRATIVE: CASE EVENT DATE: 20181023
